FAERS Safety Report 23780775 (Version 1)
Quarter: 2024Q2

REPORT INFORMATION
  Report Type: Spontaneous
  Country: GB (occurrence: GB)
  Receive Date: 20240425
  Receipt Date: 20240425
  Transmission Date: 20240716
  Serious: Yes (Other)
  Sender: FDA-Public Use
  Company Number: None

PATIENT
  Age: 51 Year
  Sex: Female
  Weight: 65 kg

DRUGS (2)
  1. FLUOXETINE [Concomitant]
     Active Substance: FLUOXETINE HYDROCHLORIDE
     Indication: Hormone level abnormal
     Dosage: UNK
     Dates: start: 2003
  2. WEGOVY [Suspect]
     Active Substance: SEMAGLUTIDE
     Indication: Weight control
     Dosage: 1.8 MG, QW
     Dates: start: 20240105

REACTIONS (6)
  - Motion sickness [Recovered/Resolved with Sequelae]
  - Illness [Unknown]
  - Anal incontinence [Unknown]
  - Somnolence [Unknown]
  - Cholelithiasis [Unknown]
  - Constipation [Unknown]
